FAERS Safety Report 18225301 (Version 1)
Quarter: 2020Q3

REPORT INFORMATION
  Report Type: Spontaneous
  Country: US (occurrence: US)
  Receive Date: 20200903
  Receipt Date: 20200903
  Transmission Date: 20201103
  Serious: No
  Sender: FDA-Public Use
  Company Number: US-LUPIN PHARMACEUTICALS INC.-2020-03478

PATIENT
  Age: 85 Year
  Sex: Female

DRUGS (1)
  1. BUDESONIDE INHALATION SUSPENSION, 0.5 MG/2 ML [Suspect]
     Active Substance: BUDESONIDE
     Indication: PRODUCT USED FOR UNKNOWN INDICATION
     Dosage: 2 AMPULES, BID
     Route: 065

REACTIONS (4)
  - Product use issue [Unknown]
  - Product packaging quantity issue [Unknown]
  - No adverse event [Unknown]
  - Product packaging difficult to open [Unknown]
